FAERS Safety Report 20936766 (Version 1)
Quarter: 2022Q2

REPORT INFORMATION
  Report Type: Report from Study
  Country: AU (occurrence: AU)
  Receive Date: 20220609
  Receipt Date: 20220609
  Transmission Date: 20220721
  Serious: Yes (Death, Other)
  Sender: FDA-Public Use
  Company Number: AU-SUN PHARMACEUTICAL INDUSTRIES LTD-2022RR-340104

PATIENT
  Age: 88 Year
  Sex: Female

DRUGS (3)
  1. MORPHINE [Suspect]
     Active Substance: MORPHINE
     Indication: Clostridium difficile colitis
     Dosage: UNK
     Route: 065
  2. HYDROMORPHONE [Suspect]
     Active Substance: HYDROMORPHONE
     Indication: Clostridium difficile colitis
     Dosage: 0.5 MILLIGRAM ONCE ONLY THEN REORDERED PRN
     Route: 058
  3. HYDROMORPHONE [Suspect]
     Active Substance: HYDROMORPHONE
     Dosage: 5 MILLIGRAM (0.5 ML OF 10 MG/1ML), UNK
     Route: 058

REACTIONS (1)
  - Toxicity to various agents [Fatal]
